FAERS Safety Report 7712023-5 (Version None)
Quarter: 2011Q3

REPORT INFORMATION
  Report Type: 
  Country: None (occurrence: None)
  Receive Date: 20110826
  Receipt Date: 20110822
  Transmission Date: 20111222
  Serious: Yes (Hospitalization)
  Sender: FDA-Public Use
  Company Number: GB-ELI_LILLY_AND_COMPANY-GB201107004213

PATIENT
  Sex: Male

DRUGS (3)
  1. EFFIENT [Suspect]
     Dosage: 60 MG, LOADING DOSE
  2. EFFIENT [Suspect]
     Indication: PERCUTANEOUS CORONARY INTERVENTION
     Dosage: UNK, UNKNOWNU
     Route: 048
  3. ASPIRIN [Concomitant]

REACTIONS (1)
  - RECTAL HAEMORRHAGE [None]
